FAERS Safety Report 25810331 (Version 2)
Quarter: 2025Q4

REPORT INFORMATION
  Report Type: Report from Study
  Country: US (occurrence: US)
  Receive Date: 20250917
  Receipt Date: 20251009
  Transmission Date: 20260118
  Serious: Yes (Other)
  Sender: CSL BEHRING
  Company Number: US-BEH-2025218658

PATIENT
  Age: 45 Year
  Sex: Female

DRUGS (2)
  1. GARADACIMAB [Suspect]
     Active Substance: GARADACIMAB
     Indication: Hereditary angioedema
     Dosage: 200 MG
     Route: 058
     Dates: start: 20250813
  2. GARADACIMAB [Suspect]
     Active Substance: GARADACIMAB
     Dosage: 200 MG, QMT
     Route: 058

REACTIONS (4)
  - Therapeutic response shortened [Unknown]
  - Therapy non-responder [Unknown]
  - Hereditary angioedema [Recovering/Resolving]
  - Hereditary angioedema [Unknown]

NARRATIVE: CASE EVENT DATE: 20250905
